FAERS Safety Report 23982596 (Version 2)
Quarter: 2024Q3

REPORT INFORMATION
  Report Type: Spontaneous
  Country: US (occurrence: US)
  Receive Date: 20240617
  Receipt Date: 20240912
  Transmission Date: 20241016
  Serious: Yes (Hospitalization)
  Sender: SANOFI AVENTIS
  Company Number: US-SA-SAC20240617000223

PATIENT
  Age: 30 Year
  Sex: Female
  Weight: 54.431 kg

DRUGS (9)
  1. DUPIXENT [Suspect]
     Active Substance: DUPILUMAB
     Indication: Cystic fibrosis lung
     Dosage: 600 MG, 1X
     Route: 058
  2. DUPIXENT [Suspect]
     Active Substance: DUPILUMAB
     Indication: Asthma
     Dosage: 300 MG, QOW
     Route: 058
  3. PERTZYE [Concomitant]
     Active Substance: PANCRELIPASE AMYLASE\PANCRELIPASE LIPASE\PANCRELIPASE PROTEASE
  4. PULMOZYME [Concomitant]
     Active Substance: DORNASE ALFA
  5. ALBUTEROL SULFATE [Concomitant]
     Active Substance: ALBUTEROL SULFATE
  6. MELOXICAM [Concomitant]
     Active Substance: MELOXICAM
     Route: 048
  7. LANTUS [Concomitant]
     Active Substance: INSULIN GLARGINE
  8. HUMALOG [Concomitant]
     Active Substance: INSULIN LISPRO
  9. XOLAIR [Concomitant]
     Active Substance: OMALIZUMAB

REACTIONS (4)
  - Infection [Unknown]
  - Dyspnoea [Unknown]
  - Cough [Unknown]
  - Product use in unapproved indication [Unknown]

NARRATIVE: CASE EVENT DATE: 20240524
